FAERS Safety Report 5237132-4 (Version None)
Quarter: 2007Q1

REPORT INFORMATION
  Report Type: 
  Country: None (occurrence: None)
  Receive Date: 20070213
  Receipt Date: 20070209
  Transmission Date: 20070707
  Serious: Yes (Hospitalization)
  Sender: FDA-Public Use
  Company Number: US-GLAXOSMITHKLINE-A0639038A

PATIENT
  Age: 75 Year
  Sex: Male

DRUGS (6)
  1. ADVAIR DISKUS 100/50 [Suspect]
     Dosage: 1PUFF TWICE PER DAY
     Route: 055
  2. SPIRIVA [Concomitant]
  3. PRAVASTATIN SODIUM [Concomitant]
  4. COUMADIN [Concomitant]
  5. TOPAL [Concomitant]
  6. ZETIA [Concomitant]

REACTIONS (5)
  - CONDITION AGGRAVATED [None]
  - DRUG INEFFECTIVE [None]
  - DRY MOUTH [None]
  - LIP DISORDER [None]
  - TONGUE DISORDER [None]
